FAERS Safety Report 7551623-2 (Version None)
Quarter: 2011Q2

REPORT INFORMATION
  Report Type: 
  Country: None (occurrence: None)
  Receive Date: 20110616
  Receipt Date: 20110609
  Transmission Date: 20111010
  Serious: No
  Sender: FDA-Public Use
  Company Number: US-PFIZER INC-2011127158

PATIENT
  Sex: Female

DRUGS (2)
  1. TRANEXAMIC ACID [Interacting]
     Indication: MENORRHAGIA
     Dosage: UNK
     Route: 065
  2. ADVIL LIQUI-GELS [Suspect]
     Dosage: UNK
     Route: 065

REACTIONS (2)
  - DRUG INTERACTION [None]
  - MENORRHAGIA [None]
